FAERS Safety Report 8270374 (Version 2)
Quarter: 2013Q2

REPORT INFORMATION
  Report Type: Spontaneous
  Country: US (occurrence: None)
  Receive Date: 20111122
  Receipt Date: 20120703
  Transmission Date: 20140414
  Serious: No
  Sender: FDA-Public Use
  Company Number: PHHY2011US66213

PATIENT
  Age: 58 Year
  Sex: Male
  Weight: 55.3 kg

DRUGS (5)
  1. GILENYA [Suspect]
     Indication: MULTIPLE SCLEROSIS
     Route: 048
     Dates: start: 20110411
  2. FAMPRIDINE (FAMPRIDINE) [Concomitant]
  3. PROVIGIL (MODAFINIL) [Concomitant]
  4. SIMVASTATIN (SIMVASTATIN) [Concomitant]
  5. BACLOFEN (BACLOFEN) [Concomitant]

REACTIONS (3)
  - DRY MOUTH [None]
  - Drug ineffective [None]
  - Multiple sclerosis [None]
